FAERS Safety Report 19323900 (Version 1)
Quarter: 2021Q2

REPORT INFORMATION
  Report Type: Spontaneous
  Country: US (occurrence: US)
  Receive Date: 20210528
  Receipt Date: 20210528
  Transmission Date: 20210717
  Serious: Yes (Other)
  Sender: FDA-Public Use
  Company Number: US-PURDUE-USA-2020-0227012

PATIENT
  Sex: Male

DRUGS (8)
  1. MORPHINE SULFATE EXTENDED?RELEASE TABLETS (RHODES 74?769, 74?862) [Suspect]
     Active Substance: MORPHINE SULFATE
     Indication: BRAIN NEOPLASM
     Dosage: UNK
     Route: 048
     Dates: start: 1991
  2. DILAUDID [Suspect]
     Active Substance: HYDROMORPHONE HYDROCHLORIDE
     Indication: BRAIN NEOPLASM
     Dosage: UNK
     Route: 048
     Dates: start: 1991
  3. HYDROCODONE BITARTRATE AND ACETAMINOPHEN [Suspect]
     Active Substance: ACETAMINOPHEN\HYDROCODONE BITARTRATE
     Indication: BRAIN NEOPLASM
     Dosage: UNK
     Route: 048
     Dates: start: 1991
  4. PERCOCET [Suspect]
     Active Substance: ACETAMINOPHEN\OXYCODONE HYDROCHLORIDE
     Indication: BRAIN NEOPLASM
     Dosage: UNK
     Route: 065
     Dates: start: 1991
  5. OXYCODONE HCL CR TABLETS (SIMILAR TO NDA 22?272) [Suspect]
     Active Substance: OXYCODONE HYDROCHLORIDE
     Indication: BRAIN NEOPLASM
     Dosage: UNK
     Route: 048
     Dates: start: 1991
  6. OXYCODONE HCL TABLETS (RHODES 91?490) [Suspect]
     Active Substance: OXYCODONE HYDROCHLORIDE
     Indication: BRAIN NEOPLASM
     Dosage: UNK
     Route: 048
     Dates: start: 1991
  7. BUPRENORPHINE TRANSDERMAL PATCH (SIMILAR TO NDA 21?306) [Suspect]
     Active Substance: BUPRENORPHINE
     Indication: BRAIN NEOPLASM
     Dosage: UNK
     Route: 062
     Dates: start: 1991
  8. OXYCODONE/ ACETAMINOPHEN TABLETS [Suspect]
     Active Substance: ACETAMINOPHEN\OXYCODONE HYDROCHLORIDE
     Indication: BRAIN NEOPLASM
     Dosage: UNK
     Route: 048
     Dates: start: 1991

REACTIONS (6)
  - Drug dependence [Unknown]
  - Pain [Unknown]
  - Anger [None]
  - Overdose [Unknown]
  - Insomnia [Unknown]
  - Amnesia [Recovered/Resolved]
